FAERS Safety Report 10079803 (Version 2)
Quarter: 2016Q1

REPORT INFORMATION
  Report Type: Spontaneous
  Country: US (occurrence: US)
  Receive Date: 20140415
  Receipt Date: 20160325
  Transmission Date: 20160525
  Serious: Yes (Hospitalization, Other)
  Sender: FDA-Public Use
  Company Number: US-ASTRAZENECA-2014SE24565

PATIENT
  Age: 54 Year
  Sex: Male

DRUGS (11)
  1. LISINOPRIL. [Interacting]
     Active Substance: LISINOPRIL
     Indication: PROTEINURIA
     Dosage: TEMPORARY STOP (APPROX 2 MONTHS)
     Route: 048
  2. LISINOPRIL. [Interacting]
     Active Substance: LISINOPRIL
     Indication: HYPERTENSION
     Route: 048
  3. LISINOPRIL. [Interacting]
     Active Substance: LISINOPRIL
     Indication: PROTEINURIA
     Route: 048
  4. LISINOPRIL. [Interacting]
     Active Substance: LISINOPRIL
     Indication: HYPERTENSION
     Dosage: TEMPORARY STOP (APPROX 2 MONTHS)
     Route: 048
  5. LISINOPRIL. [Suspect]
     Active Substance: LISINOPRIL
     Indication: HYPERTENSION
     Route: 048
  6. LISINOPRIL. [Interacting]
     Active Substance: LISINOPRIL
     Indication: PROTEINURIA
     Route: 048
  7. LINAGLIPTIN [Interacting]
     Active Substance: LINAGLIPTIN
     Indication: HYPOGLYCAEMIA
  8. HYDRALAZINE [Concomitant]
     Active Substance: HYDRALAZINE HYDROCHLORIDE
     Indication: HYPERTENSION
  9. AMLODIPINE [Concomitant]
     Active Substance: AMLODIPINE BESYLATE
     Indication: HYPERTENSION
  10. CLONIDINE. [Concomitant]
     Active Substance: CLONIDINE
     Indication: HYPERTENSION
  11. GLIMEPIRIDE. [Concomitant]
     Active Substance: GLIMEPIRIDE
     Indication: TYPE 2 DIABETES MELLITUS

REACTIONS (3)
  - Blood pressure decreased [Recovered/Resolved]
  - Acute kidney injury [Recovered/Resolved]
  - Drug interaction [Unknown]
